FAERS Safety Report 6042975-3 (Version None)
Quarter: 2009Q1

REPORT INFORMATION
  Report Type: 
  Country: None (occurrence: None)
  Receive Date: 20090119
  Receipt Date: 20081124
  Transmission Date: 20090719
  Serious: No
  Sender: FDA-Public Use
  Company Number: US-BAYER-200838463NA

PATIENT
  Sex: Male

DRUGS (4)
  1. LEVITRA [Suspect]
     Dosage: TOTAL DAILY DOSE: 10 MG  UNIT DOSE: 10 MG
     Dates: start: 20080101
  2. LEVITRA [Suspect]
     Dates: start: 20080101
  3. VICODIN [Concomitant]
  4. PERCOCET [Concomitant]

REACTIONS (2)
  - HEADACHE [None]
  - RHINORRHOEA [None]
